FAERS Safety Report 6111437-7 (Version None)
Quarter: 2009Q1

REPORT INFORMATION
  Report Type: 
  Country: None (occurrence: None)
  Receive Date: 20090309
  Receipt Date: 20090220
  Transmission Date: 20090719
  Serious: Yes (Other)
  Sender: FDA-Public Use
  Company Number: 2009AL001179

PATIENT
  Sex: Male

DRUGS (6)
  1. EPIRUBICIN HCL [Suspect]
     Indication: BREAST CANCER FEMALE
     Dosage: 100 MG/M**2; TRPL
     Route: 064
     Dates: start: 20080828, end: 20081030
  2. METOCLOPRAMIDE [Suspect]
     Indication: PROPHYLAXIS
     Dosage: PRN; TRPL
     Route: 064
     Dates: start: 20080828, end: 20081030
  3. FLUOROURACIL [Concomitant]
  4. CYCLOPHOSPHAMIDE [Concomitant]
  5. SOLU-MEDROL [Concomitant]
  6. ZOFRAN [Concomitant]

REACTIONS (2)
  - FOETAL HAEMOGLOBIN INCREASED [None]
  - MATERNAL DRUGS AFFECTING FOETUS [None]
